FAERS Safety Report 21983642 (Version 2)
Quarter: 2023Q1

REPORT INFORMATION
  Report Type: Spontaneous
  Country: CA (occurrence: CA)
  Receive Date: 20230213
  Receipt Date: 20230215
  Transmission Date: 20230417
  Serious: Yes (Other)
  Sender: FDA-Public Use
  Company Number: CA-CELLTRION INC.-2022CA003638

PATIENT

DRUGS (7)
  1. INFLECTRA [Suspect]
     Active Substance: INFLIXIMAB-DYYB
     Indication: Psoriatic arthropathy
     Dosage: 450 MG, ON 0, 2, 6 WEEK THEN EVERY 8 WEEKS
     Route: 042
     Dates: start: 20211019, end: 20211202
  2. INFLECTRA [Suspect]
     Active Substance: INFLIXIMAB-DYYB
     Dosage: 450 MG EVERY 8 WEEK
     Route: 042
     Dates: start: 20220124
  3. INFLECTRA [Suspect]
     Active Substance: INFLIXIMAB-DYYB
     Dosage: 450 MG EVERY 8 WEEK
     Route: 042
     Dates: start: 20220124
  4. INFLECTRA [Suspect]
     Active Substance: INFLIXIMAB-DYYB
     Dosage: 450 MG EVERY 8 WEEK
     Route: 042
     Dates: start: 20220124, end: 20220914
  5. INFLECTRA [Suspect]
     Active Substance: INFLIXIMAB-DYYB
     Dosage: 450 MG EVERY 8 WEEK
     Route: 042
     Dates: start: 20220321
  6. INFLECTRA [Suspect]
     Active Substance: INFLIXIMAB-DYYB
     Dosage: 400 MG EVERY 8 WEEK
     Route: 042
     Dates: start: 20220914
  7. INFLECTRA [Suspect]
     Active Substance: INFLIXIMAB-DYYB
     Dosage: 400 MG EVERY 5 WEEKS
     Route: 042
     Dates: start: 20221031

REACTIONS (7)
  - Pulmonary tuberculosis [Recovering/Resolving]
  - Condition aggravated [Unknown]
  - Pain [Unknown]
  - Off label use [Unknown]
  - Off label use [Unknown]
  - Off label use [Unknown]
  - Intentional product use issue [Unknown]

NARRATIVE: CASE EVENT DATE: 20220124
